FAERS Safety Report 4627383-1 (Version None)
Quarter: 2005Q1

REPORT INFORMATION
  Report Type: 
  Country: None (occurrence: None)
  Receive Date: 20050330
  Receipt Date: 20020910
  Transmission Date: 20050727
  Serious: No
  Sender: FDA-Public Use
  Company Number: 6020

PATIENT
  Age: 53 Year
  Sex: Female

DRUGS (8)
  1. DIGOXIN [Suspect]
     Indication: ATRIAL FIBRILLATION
     Dosage: 250 MICROGRAM FREQ
  2. AMIODARONE [Suspect]
     Indication: ATRIAL FIBRILLATION
     Dosage: 200 MG FREQ UNK
  3. PHENOXYMETHYLPENICILLIN [Suspect]
     Indication: ATRIAL FIBRILLATION
     Dosage: 250 MG FREQ
  4. FRUSEMIDE [Suspect]
     Indication: ATRIAL FIBRILLATION
     Dosage: 40 MG FREQ UNK
  5. AMILORIDE [Suspect]
     Indication: ATRIAL FIBRILLATION
     Dosage: 5 MG FREQ UNK
  6. METOPROLOL TARTRATE [Suspect]
     Indication: ATRIAL FIBRILLATION
     Dosage: 375 MG FREQ UNK
  7. FERRIOU SULPHATE [Suspect]
     Indication: ATRIAL FIBRILLATION
     Dosage: 600 MG FREQ UNK
  8. WARFARIN SODIUM [Suspect]
     Indication: ATRIAL FIBRILLATION

REACTIONS (2)
  - DYSPNOEA [None]
  - PALPITATIONS [None]
